FAERS Safety Report 7587190-7 (Version None)
Quarter: 2011Q3

REPORT INFORMATION
  Report Type: 
  Country: None (occurrence: None)
  Receive Date: 20110701
  Receipt Date: 20110624
  Transmission Date: 20111222
  Serious: Yes (Other)
  Sender: FDA-Public Use
  Company Number: CHPA2011US08649

PATIENT
  Age: 59 Year
  Sex: Male

DRUGS (3)
  1. NICOTINE [Suspect]
     Dosage: 21 MG, UNK
     Route: 062
     Dates: start: 20110501
  2. NICOTINE [Suspect]
     Indication: SMOKING CESSATION THERAPY
     Dosage: 21 MG DAILY
     Route: 062
     Dates: start: 20110415
  3. NICOTINE [Suspect]
     Dosage: 14 MG, UNK
     Route: 062
     Dates: end: 20110501

REACTIONS (3)
  - INCORRECT DRUG ADMINISTRATION DURATION [None]
  - CONVULSION [None]
  - INAPPROPRIATE SCHEDULE OF DRUG ADMINISTRATION [None]
